APPROVED DRUG PRODUCT: ETODOLAC
Active Ingredient: ETODOLAC
Strength: 400MG
Dosage Form/Route: TABLET;ORAL
Application: A074927 | Product #001
Applicant: BIOPHARM DISCOVERY LLC
Approved: Oct 30, 1997 | RLD: No | RS: No | Type: DISCN